FAERS Safety Report 15008277 (Version 2)
Quarter: 2018Q3

REPORT INFORMATION
  Report Type: Spontaneous
  Country: US (occurrence: US)
  Receive Date: 20180613
  Receipt Date: 20180826
  Transmission Date: 20181010
  Serious: Yes (Hospitalization, Other)
  Sender: FDA-Public Use
  Company Number: US-009507513-1806USA003138

PATIENT
  Age: 60 Year
  Sex: Female

DRUGS (4)
  1. KEYTRUDA [Suspect]
     Active Substance: PEMBROLIZUMAB
     Indication: LUNG ADENOCARCINOMA
     Dosage: 200 MG EVERY 3 WEEKS
     Route: 042
     Dates: start: 20180323, end: 201805
  2. ALIMTA [Concomitant]
     Active Substance: PEMETREXED DISODIUM
     Dosage: 985 MG EVERY 3 WEEKS
     Route: 042
     Dates: start: 2018
  3. KEYTRUDA [Suspect]
     Active Substance: PEMBROLIZUMAB
     Dosage: 200 MG EVERY 3 WEEKS
     Route: 042
     Dates: start: 20180606
  4. CARBOPLATIN. [Concomitant]
     Active Substance: CARBOPLATIN
     Dosage: 620 MG EVERY 3 WEEKS
     Route: 042
     Dates: start: 2018

REACTIONS (7)
  - Tremor [Unknown]
  - Urinary incontinence [Unknown]
  - Haemoglobin decreased [Unknown]
  - Adverse event [Unknown]
  - Dyspnoea [Unknown]
  - Lethargy [Unknown]
  - Cough [Unknown]

NARRATIVE: CASE EVENT DATE: 2018
